FAERS Safety Report 17142259 (Version 2)
Quarter: 2019Q4

REPORT INFORMATION
  Report Type: Spontaneous
  Country: DE (occurrence: DE)
  Receive Date: 20191211
  Receipt Date: 20191227
  Transmission Date: 20200122
  Serious: Yes (Life-Threatening, Other)
  Sender: FDA-Public Use
  Company Number: DE-MYLANLABS-2019M1120135

PATIENT
  Age: 38 Year

DRUGS (6)
  1. CLOZAPINE. [Concomitant]
     Active Substance: CLOZAPINE
     Dosage: 50 MILLIGRAM, QD
     Route: 065
     Dates: start: 201601, end: 201806
  2. PAROXETINE. [Suspect]
     Active Substance: PAROXETINE
     Indication: PRODUCT USED FOR UNKNOWN INDICATION
     Dosage: 60 MG, UNK (TURN OF THE YEAR 2015/2016)
     Route: 065
     Dates: start: 2018
  3. LEPONEX [Concomitant]
     Active Substance: CLOZAPINE
     Indication: PRODUCT USED FOR UNKNOWN INDICATION
     Dosage: 50 MG, QD
     Route: 065
     Dates: end: 2018
  4. CLOZAPINE. [Concomitant]
     Active Substance: CLOZAPINE
     Indication: PRODUCT USED FOR UNKNOWN INDICATION
     Dosage: 300 MILLIGRAM, QD
  5. CLOZAPINE. [Concomitant]
     Active Substance: CLOZAPINE
     Dosage: 100 MILLIGRAM, QD
  6. CLOZAPINE. [Concomitant]
     Active Substance: CLOZAPINE
     Dosage: 50 MILLIGRAM, QD
     Route: 065
     Dates: end: 2018

REACTIONS (17)
  - Dyspepsia [Not Recovered/Not Resolved]
  - Drug dependence [Recovering/Resolving]
  - Quality of life decreased [Unknown]
  - Tension headache [Recovering/Resolving]
  - Schizophrenia [Unknown]
  - Neck pain [Recovering/Resolving]
  - Hyperhidrosis [Unknown]
  - Obsessive-compulsive disorder [Unknown]
  - Muscle tightness [Recovering/Resolving]
  - Altered state of consciousness [Recovering/Resolving]
  - Suicidal ideation [Not Recovered/Not Resolved]
  - Skin disorder [Unknown]
  - Head injury [Unknown]
  - Feeling abnormal [Recovering/Resolving]
  - Craniocerebral injury [Recovering/Resolving]
  - Condition aggravated [Recovering/Resolving]
  - Aggression [Recovering/Resolving]
